FAERS Safety Report 16668155 (Version 2)
Quarter: 2019Q3

REPORT INFORMATION
  Report Type: Spontaneous
  Country: US (occurrence: US)
  Receive Date: 20190805
  Receipt Date: 20190828
  Transmission Date: 20191004
  Serious: No
  Sender: FDA-Public Use
  Company Number: US-HORIZON-DUE-0450-2019

PATIENT
  Age: 52 Year
  Sex: Male

DRUGS (1)
  1. DUEXIS [Suspect]
     Active Substance: FAMOTIDINE\IBUPROFEN
     Indication: TENDONITIS
     Dosage: AS NEEDED
     Dates: start: 2019

REACTIONS (6)
  - Limb injury [Unknown]
  - Myalgia [Unknown]
  - Intentional product use issue [Unknown]
  - Off label use [Unknown]
  - Withdrawal syndrome [Unknown]
  - Arthralgia [Unknown]

NARRATIVE: CASE EVENT DATE: 201907
